FAERS Safety Report 5815069-7 (Version None)
Quarter: 2008Q3

REPORT INFORMATION
  Report Type: 
  Country: None (occurrence: None)
  Receive Date: 20080718
  Receipt Date: 20080714
  Transmission Date: 20090109
  Serious: Yes (Death, Hospitalization)
  Sender: FDA-Public Use
  Company Number: IL-GENENTECH-226580

PATIENT
  Sex: Male
  Weight: 62 kg

DRUGS (3)
  1. RITUXIMAB [Suspect]
     Indication: CHRONIC LYMPHOCYTIC LEUKAEMIA
     Dosage: 94 MG, UNK
     Route: 042
     Dates: start: 20051031, end: 20060411
  2. CYCLOPHOSPHAMIDE [Suspect]
     Indication: CHRONIC LYMPHOCYTIC LEUKAEMIA
     Dosage: 235 MG, UNK
     Route: 042
     Dates: start: 20051101, end: 20060413
  3. FLUDARABINE PHOSPHATE [Suspect]
     Indication: CHRONIC LYMPHOCYTIC LEUKAEMIA
     Dosage: 24 MG, UNK
     Route: 042
     Dates: start: 20051101, end: 20060413

REACTIONS (1)
  - GASTROENTERITIS CRYPTOSPORIDIAL [None]
